FAERS Safety Report 9125319 (Version 1)
Quarter: 2013Q1

REPORT INFORMATION
  Report Type: Spontaneous
  Country: CA (occurrence: CA)
  Receive Date: 20130227
  Receipt Date: 20130227
  Transmission Date: 20140127
  Serious: Yes (Hospitalization, Other)
  Sender: FDA-Public Use
  Company Number: CA-PFIZER INC-2012227252

PATIENT
  Age: 63 Year
  Sex: Male
  Weight: 70.3 kg

DRUGS (8)
  1. CHAMPIX [Suspect]
     Indication: SMOKING CESSATION THERAPY
     Dosage: 1 MG, 2X/DAY
     Route: 048
     Dates: start: 20080205, end: 20101010
  2. ZOPICLONE [Concomitant]
     Indication: INSOMNIA
     Dosage: 3.75 MG, (1/2 OF 7.5MG) 3-4 TIMES PER WEEK
  3. WARFARIN [Concomitant]
     Indication: THROMBOSIS PROPHYLAXIS
     Dosage: 3-5 OF 2MG TABLETS DAILY
  4. METOPROLOL TARTRATE [Concomitant]
     Indication: HEART RATE DECREASED
     Dosage: 50 MG, ONLY TOOK ONCE
  5. METOPROLOL TARTRATE [Concomitant]
     Indication: SUPRAVENTRICULAR TACHYCARDIA
  6. FLECAINIDE ACETATE [Concomitant]
     Indication: HEART RATE DECREASED
     Dosage: 100 MG, ONLY TOOK ONCE
  7. FLECAINIDE ACETATE [Concomitant]
     Indication: SUPRAVENTRICULAR TACHYCARDIA
  8. LORAZEPAM [Concomitant]
     Indication: AGITATION
     Dosage: 1 MG, AS NEEDED

REACTIONS (13)
  - Tachycardia [Recovered/Resolved]
  - Social avoidant behaviour [Not Recovered/Not Resolved]
  - Suicidal ideation [Unknown]
  - Violence-related symptom [Not Recovered/Not Resolved]
  - Hostility [Not Recovered/Not Resolved]
  - Irritability [Not Recovered/Not Resolved]
  - Aggression [Unknown]
  - Anger [Not Recovered/Not Resolved]
  - Stress [Not Recovered/Not Resolved]
  - Nausea [Not Recovered/Not Resolved]
  - Sleep disorder [Not Recovered/Not Resolved]
  - Feeling abnormal [Not Recovered/Not Resolved]
  - Urticaria [Not Recovered/Not Resolved]
